FAERS Safety Report 4725834-5 (Version None)
Quarter: 2005Q3

REPORT INFORMATION
  Report Type: 
  Country: None (occurrence: None)
  Receive Date: 20050722
  Receipt Date: 20050722
  Transmission Date: 20060218
  Serious: No
  Sender: FDA-Public Use
  Company Number: None

PATIENT
  Age: 65 Year
  Sex: Female
  Weight: 54.4316 kg

DRUGS (1)
  1. VIOXX [Suspect]
     Indication: ARTHRITIS
     Dosage: 1 OR 2 DAILY 3 YEARS TO 4 YEARS

REACTIONS (5)
  - ASTHENIA [None]
  - BIOPSY BONE MARROW ABNORMAL [None]
  - BLOOD COUNT ABNORMAL [None]
  - BLOOD IRON DECREASED [None]
  - RENAL INJURY [None]
